FAERS Safety Report 8360022-5 (Version None)
Quarter: 2012Q2

REPORT INFORMATION
  Report Type: 
  Country: None (occurrence: None)
  Receive Date: 20120515
  Receipt Date: 20120212
  Transmission Date: 20120825
  Serious: Yes (Other)
  Sender: FDA-Public Use
  Company Number: PL-UCBSA-008886

PATIENT
  Age: 62 Year
  Sex: Female
  Weight: 64 kg

DRUGS (9)
  1. CALCIUM [Concomitant]
     Indication: OSTEOPOROSIS
     Route: 048
     Dates: start: 20051012
  2. METHOTREXATE [Concomitant]
     Indication: RHEUMATOID ARTHRITIS
     Route: 048
     Dates: start: 20040218
  3. ALFADIOL [Concomitant]
     Indication: OSTEOPOROSIS
     Route: 048
     Dates: start: 20051012
  4. POLPRAZOL [Concomitant]
     Indication: GASTROOESOPHAGEAL REFLUX DISEASE
     Route: 048
     Dates: start: 20060713
  5. INHIBACE [Concomitant]
     Indication: HYPERTENSION
     Route: 048
     Dates: start: 20051012
  6. CERTOLIZUMAB PEGOL [Suspect]
     Indication: RHEUMATOID ARTHRITIS
     Dosage: CDP870-050
     Route: 058
     Dates: start: 20060118, end: 20060706
  7. FOLIC ACID [Concomitant]
     Indication: ANAEMIA PROPHYLAXIS
     Route: 048
     Dates: start: 20020201
  8. CERTOLIZUMAB PEGOL [Suspect]
     Route: 058
     Dates: start: 20060706, end: 20091229
  9. ALENDRONAT RATIOPHARM [Concomitant]
     Indication: OSTEOPOROSIS
     Route: 048
     Dates: start: 20071023

REACTIONS (1)
  - LUNG NEOPLASM MALIGNANT [None]
